FAERS Safety Report 22272145 (Version 2)
Quarter: 2023Q2

REPORT INFORMATION
  Report Type: Spontaneous
  Country: US (occurrence: None)
  Receive Date: 20230502
  Receipt Date: 20230509
  Transmission Date: 20230721
  Serious: Yes (Other)
  Sender: FDA-Public Use
  Company Number: US-ROCHE-3340422

PATIENT
  Age: 66 Year
  Sex: Female
  Weight: 58.112 kg

DRUGS (6)
  1. BONIVA [Suspect]
     Active Substance: IBANDRONATE SODIUM
     Indication: Osteoporosis
     Dosage: NO
     Route: 048
     Dates: start: 202110, end: 202201
  2. ELIQUIS [Concomitant]
     Active Substance: APIXABAN
     Indication: Pulmonary thrombosis
     Route: 048
     Dates: start: 2018
  3. VITAMIN C [Concomitant]
     Active Substance: ASCORBIC ACID
     Dosage: TAKES ONLY WHEN SHE REMEMBERS TO TAKE THIS
  4. ERGOCALCIFEROL [Concomitant]
     Active Substance: ERGOCALCIFEROL
     Dosage: TAKES ONLY WHEN SHE REMEMBERS TO TAKE IT
  5. COVID 19 VACCINE (UNK INGREDIENTS) [Concomitant]
  6. PNEUMOCOCCAL VACCINE POLYVALENT [Concomitant]
     Active Substance: PNEUMOCOCCAL VACCINE POLYVALENT

REACTIONS (3)
  - Retinal vein occlusion [Not Recovered/Not Resolved]
  - Thrombosis [Recovered/Resolved]
  - Bone pain [Unknown]

NARRATIVE: CASE EVENT DATE: 20220101
